FAERS Safety Report 6058836-X (Version None)
Quarter: 2009Q1

REPORT INFORMATION
  Report Type: 
  Country: None (occurrence: None)
  Receive Date: 20090130
  Receipt Date: 20090120
  Transmission Date: 20090719
  Serious: Yes (Hospitalization, Other)
  Sender: FDA-Public Use
  Company Number: CA-JNJFOC-20090105031

PATIENT
  Sex: Female
  Weight: 70 kg

DRUGS (10)
  1. REMICADE [Suspect]
     Route: 042
  2. REMICADE [Suspect]
     Route: 042
  3. REMICADE [Suspect]
     Indication: RHEUMATOID ARTHRITIS
     Route: 042
  4. METHOTREXATE [Suspect]
     Indication: DRUG USE FOR UNKNOWN INDICATION
  5. PREDNISONE TAB [Concomitant]
  6. WARFARIN SODIUM [Concomitant]
  7. LORAZEPAM [Concomitant]
     Dosage: 1-2 MG AT BEDTIME AS NEEDED
  8. BISOPROLOL [Concomitant]
  9. ACTONEL [Concomitant]
  10. NITROGLYCERIN [Concomitant]
     Route: 060

REACTIONS (2)
  - ASTHENIA [None]
  - RESPIRATORY DISORDER [None]
